FAERS Safety Report 4442749-0 (Version None)
Quarter: 2004Q3

REPORT INFORMATION
  Report Type: 
  Country: None (occurrence: None)
  Receive Date: 20040903
  Receipt Date: 20040614
  Transmission Date: 20050211
  Serious: Yes (Other)
  Sender: FDA-Public Use
  Company Number: 2004UW12405

PATIENT
  Age: 84 Year
  Sex: Female
  Weight: 55.7924 kg

DRUGS (2)
  1. CRESTOR [Suspect]
     Indication: HYPERCHOLESTEROLAEMIA
  2. LISINOPRIL [Concomitant]

REACTIONS (1)
  - NIGHTMARE [None]
